FAERS Safety Report 19244625 (Version 1)
Quarter: 2021Q2

REPORT INFORMATION
  Report Type: Spontaneous
  Country: US (occurrence: US)
  Receive Date: 20210511
  Receipt Date: 20210511
  Transmission Date: 20210717
  Serious: No
  Sender: FDA-Public Use
  Company Number: US-TEVA-2021-US-1901943

PATIENT
  Age: 77 Year
  Sex: Female

DRUGS (2)
  1. AJOVY [Suspect]
     Active Substance: FREMANEZUMAB-VFRM
     Indication: PRODUCT USED FOR UNKNOWN INDICATION
     Route: 065
  2. HUMIRA [Concomitant]
     Active Substance: ADALIMUMAB

REACTIONS (7)
  - Product storage error [Unknown]
  - Injection site pruritus [Unknown]
  - Sciatica [Unknown]
  - Arthritis [Unknown]
  - Injection site swelling [Unknown]
  - Device difficult to use [Unknown]
  - Product dose omission issue [Unknown]
